FAERS Safety Report 8564642 (Version 2)
Quarter: 2012Q4

REPORT INFORMATION
  Report Type: 
  Country: US (occurrence: US)
  Receive Date: 20120516
  Receipt Date: 20121227
  Transmission Date: 20130627
  Serious: Yes (Other)
  Sender: FDA-Public Use
  Company Number: US-CELGENEUS-163-50794-12051271

PATIENT

DRUGS (2)
  1. VIDAZA [Suspect]
     Indication: 5Q MINUS MDS
     Route: 065
  2. REVLIMID [Suspect]
     Indication: 5Q MINUS MDS
     Route: 048

REACTIONS (2)
  - Acute myeloid leukaemia [Unknown]
  - Treatment failure [Unknown]
